FAERS Safety Report 8429555 (Version 4)
Quarter: 2013Q1

REPORT INFORMATION
  Report Type: Spontaneous
  Country: US (occurrence: None)
  Receive Date: 20120215
  Receipt Date: 20130214
  Transmission Date: 20140127
  Serious: Yes (Other)
  Sender: FDA-Public Use
  Company Number: AUR-APL-2012-00919

PATIENT
  Age: 81 Year
  Sex: Female
  Weight: 65.76 kg

DRUGS (5)
  1. LOSARTAN (LOSARTAN) [Suspect]
     Indication: PRODUCT USED FOR UNKNOWN INDICATION
     Dosage: 50 MG
  2. LIPITOR (ATORVASTATIN CALCIUM) [Suspect]
     Indication: PRODUCT USED FOR UNKNOWN INDICATION
     Dosage: UNKNOWN
  3. ATORVASTATIN CALCIUM [Suspect]
     Indication: PRODUCT USED FOR UNKNOWN INDICATION
     Dosage: 20 MG, ORAL
     Route: 048
     Dates: start: 20120118
  4. CARVEDILOL (CARVEDILOL) [Concomitant]
  5. LYRICA (PREGABALIN) [Suspect]

REACTIONS (7)
  - Myalgia [None]
  - Osteoarthritis [None]
  - Condition aggravated [None]
  - Hypoaesthesia [None]
  - Paraesthesia [None]
  - Malaise [None]
  - Pain in extremity [None]
